FAERS Safety Report 4990744-5 (Version None)
Quarter: 2006Q1

REPORT INFORMATION
  Report Type: 
  Country: None (occurrence: None)
  Receive Date: 20060315
  Receipt Date: 20050825
  Transmission Date: 20060701
  Serious: Yes (Other)
  Sender: FDA-Public Use
  Company Number: USA0508104726

PATIENT
  Age: 61 Year
  Sex: Female
  Weight: 123.6 kg

DRUGS (1)
  1. GEMZAR [Suspect]
     Dosage: 1800 MG
     Dates: start: 20050101

REACTIONS (1)
  - HYPERSENSITIVITY [None]
